FAERS Safety Report 8313114-0 (Version None)
Quarter: 2012Q2

REPORT INFORMATION
  Report Type: 
  Country: None (occurrence: None)
  Receive Date: 20120426
  Receipt Date: 20120425
  Transmission Date: 20120825
  Serious: Yes (Hospitalization, Other)
  Sender: FDA-Public Use
  Company Number: DE-PFIZER INC-2012097213

PATIENT
  Age: 82 Year
  Sex: Male

DRUGS (8)
  1. DABIGATRAN [Suspect]
     Indication: ANTICOAGULANT THERAPY
     Dosage: 110 MG, 2X/DAY
     Route: 048
     Dates: start: 20120201
  2. PLAVIX [Concomitant]
     Dosage: UNK
  3. METOPROLOL [Concomitant]
     Dosage: UNK
     Dates: start: 20120301
  4. MARCUMAR [Concomitant]
  5. ACETYLSALICYLIC ACID [Concomitant]
     Dosage: UNK
     Dates: end: 20120201
  6. CRESTOR [Concomitant]
     Dosage: UNK
     Dates: start: 20120301
  7. AMIODARONE HCL [Suspect]
     Indication: ATRIAL FIBRILLATION
     Dosage: 200 MG,DAILY
     Route: 048
     Dates: start: 20120201, end: 20120322
  8. HYDROCHLOROTHIAZIDE [Concomitant]
     Dosage: UNK

REACTIONS (16)
  - DEPRESSION [None]
  - ABDOMINAL DISCOMFORT [None]
  - SICK SINUS SYNDROME [None]
  - FATIGUE [None]
  - NAUSEA [None]
  - RETCHING [None]
  - TREMOR [None]
  - ATRIOVENTRICULAR BLOCK [None]
  - GENERAL PHYSICAL HEALTH DETERIORATION [None]
  - MALAISE [None]
  - ASTHENIA [None]
  - VISUAL IMPAIRMENT [None]
  - HYPERACUSIS [None]
  - MUSCLE DISORDER [None]
  - HEART RATE DECREASED [None]
  - SINUS BRADYCARDIA [None]
